FAERS Safety Report 6783580-0 (Version None)
Quarter: 2010Q2

REPORT INFORMATION
  Report Type: 
  Country: None (occurrence: None)
  Receive Date: 20100622
  Receipt Date: 20100616
  Transmission Date: 20101027
  Serious: Yes (Other)
  Sender: FDA-Public Use
  Company Number: PHHY2008BR10264

PATIENT
  Age: 24 Year
  Sex: Female

DRUGS (1)
  1. FORADIL [Suspect]
     Indication: FATIGUE
     Dosage: 12 UG, WHEN NEEDED

REACTIONS (4)
  - CAESAREAN SECTION [None]
  - DRUG EXPOSURE DURING PREGNANCY [None]
  - FATIGUE [None]
  - HYPERTENSION [None]
